FAERS Safety Report 11046974 (Version 1)
Quarter: 2015Q2

REPORT INFORMATION
  Report Type: Spontaneous
  Country: US (occurrence: None)
  Receive Date: 20150417
  Receipt Date: 20150417
  Transmission Date: 20150821
  Serious: Yes (Other)
  Sender: FDA-Public Use
  Company Number: None

PATIENT
  Age: 32 Year
  Sex: Female
  Weight: 108.86 kg

DRUGS (1)
  1. SUBOXONE [Suspect]
     Active Substance: BUPRENORPHINE HYDROCHLORIDE\NALOXONE HYDROCHLORIDE
     Dosage: 8-2?QD?ORAL??4-10 4, 15 ?4-10-4,-15
     Route: 048

REACTIONS (5)
  - Rash macular [None]
  - Malaise [None]
  - Vomiting [None]
  - Hypertension [None]
  - Urticaria [None]

NARRATIVE: CASE EVENT DATE: 20150410
